FAERS Safety Report 17015297 (Version 1)
Quarter: 2019Q4

REPORT INFORMATION
  Report Type: Spontaneous
  Country: US (occurrence: US)
  Receive Date: 20191111
  Receipt Date: 20191111
  Transmission Date: 20200122
  Serious: No
  Sender: FDA-Public Use
  Company Number: PHHY2005US008928

PATIENT

DRUGS (3)
  1. WARFARIN [Suspect]
     Active Substance: WARFARIN
     Indication: PRODUCT USED FOR UNKNOWN INDICATION
     Route: 065
  2. ANGIOMAX [Suspect]
     Active Substance: BIVALIRUDIN
     Indication: PRODUCT USED FOR UNKNOWN INDICATION
     Dosage: 0.75 MG/KG, UNK (BOLUS)
     Route: 040
  3. ANGIOMAX [Suspect]
     Active Substance: BIVALIRUDIN
     Dosage: 1.75 MG/KG, HR
     Route: 042

REACTIONS (1)
  - International normalised ratio increased [Unknown]
